FAERS Safety Report 11122523 (Version 5)
Quarter: 2017Q2

REPORT INFORMATION
  Report Type: Report from Study
  Country: US (occurrence: US)
  Receive Date: 20150519
  Receipt Date: 20170424
  Transmission Date: 20170829
  Serious: Yes (Other)
  Sender: FDA-Public Use
  Company Number: US-SA-2015SA008884

PATIENT
  Age: 38 Year
  Sex: Female

DRUGS (5)
  1. LOSARTAN. [Concomitant]
     Active Substance: LOSARTAN
  2. METOPROLOL. [Concomitant]
     Active Substance: METOPROLOL
     Indication: BLOOD PRESSURE MEASUREMENT
  3. LISINOPRIL. [Concomitant]
     Active Substance: LISINOPRIL
  4. AUBAGIO [Suspect]
     Active Substance: TERIFLUNOMIDE
     Indication: MULTIPLE SCLEROSIS
     Route: 048
     Dates: start: 20150112
  5. AUBAGIO [Suspect]
     Active Substance: TERIFLUNOMIDE
     Indication: MULTIPLE SCLEROSIS
     Route: 048
     Dates: start: 20150912

REACTIONS (19)
  - Central nervous system lesion [Not Recovered/Not Resolved]
  - Urinary tract infection [Not Recovered/Not Resolved]
  - Alopecia [Recovered/Resolved]
  - Alopecia [Unknown]
  - Back pain [Unknown]
  - Hepatic enzyme increased [Recovered/Resolved]
  - Paraesthesia [Unknown]
  - Menstrual disorder [Not Recovered/Not Resolved]
  - Red blood cells urine [Unknown]
  - Anxiety [Unknown]
  - Weight increased [Unknown]
  - Hypertension [Recovered/Resolved]
  - Head discomfort [Unknown]
  - Flushing [Unknown]
  - Fatigue [Unknown]
  - Menstruation irregular [Not Recovered/Not Resolved]
  - Musculoskeletal discomfort [Unknown]
  - Feeling abnormal [Not Recovered/Not Resolved]
  - Pain [Not Recovered/Not Resolved]

NARRATIVE: CASE EVENT DATE: 2015
